FAERS Safety Report 13074515 (Version 1)
Quarter: 2016Q4

REPORT INFORMATION
  Report Type: Spontaneous
  Country: US (occurrence: US)
  Receive Date: 20161230
  Receipt Date: 20161230
  Transmission Date: 20170207
  Serious: No
  Sender: FDA-Public Use
  Company Number: ALCN2016US009833

PATIENT
  Sex: Male

DRUGS (1)
  1. ZADITOR [Suspect]
     Active Substance: KETOTIFEN FUMARATE
     Indication: EYE DISORDER
     Route: 047

REACTIONS (4)
  - Drug dispensing error [Unknown]
  - Incorrect product storage [Unknown]
  - Product container issue [Unknown]
  - Drug administered to patient of inappropriate age [Unknown]
